FAERS Safety Report 7988511-3 (Version None)
Quarter: 2011Q4

REPORT INFORMATION
  Report Type: 
  Country: None (occurrence: None)
  Receive Date: 20111216
  Receipt Date: 20111209
  Transmission Date: 20120403
  Serious: Yes (Death, Hospitalization)
  Sender: FDA-Public Use
  Company Number: US-ACCORD-010782

PATIENT
  Age: 66 Year
  Sex: Male

DRUGS (2)
  1. PREDNISONE [Suspect]
     Route: 048
  2. MYCOPHENOLATE MOFETIL [Suspect]
     Route: 048

REACTIONS (6)
  - ACUTE RESPIRATORY DISTRESS SYNDROME [None]
  - DISSEMINATED INTRAVASCULAR COAGULATION [None]
  - OFF LABEL USE [None]
  - LUNG INFILTRATION [None]
  - STRONGYLOIDIASIS [None]
  - SEPSIS [None]
